FAERS Safety Report 12789495 (Version 1)
Quarter: 2016Q3

REPORT INFORMATION
  Report Type: Spontaneous
  Country: US (occurrence: US)
  Receive Date: 20160928
  Receipt Date: 20160928
  Transmission Date: 20161109
  Serious: No
  Sender: FDA-Public Use
  Company Number: US-AUROBINDO-AUR-APL-2015-08451

PATIENT
  Age: 55 Year
  Sex: Female

DRUGS (1)
  1. ALENDRONATE SODIUM 35MG TABLET [Suspect]
     Active Substance: ALENDRONATE SODIUM
     Indication: BONE DISORDER
     Dosage: 35 MG, EVERY WEEK
     Route: 048
     Dates: start: 201503

REACTIONS (1)
  - Contusion [Recovered/Resolved]

NARRATIVE: CASE EVENT DATE: 201509
